FAERS Safety Report 8920050 (Version 1)
Quarter: 2012Q4

REPORT INFORMATION
  Report Type: 
  Country: FR (occurrence: US)
  Receive Date: 20121121
  Receipt Date: 20121121
  Transmission Date: 20130627
  Serious: No
  Sender: FDA-Public Use
  Company Number: US-009507513-1211USA007650

PATIENT
  Age: 7 Year
  Sex: Male

DRUGS (4)
  1. SINGULAIR [Suspect]
     Dosage: UNK
     Route: 048
  2. ASMANEX TWISTHALER [Suspect]
     Dosage: UNK
     Route: 055
  3. FLONASE [Suspect]
     Dosage: UNK
  4. ALLEGRA [Suspect]
     Dosage: 6mg/ml, bid
     Route: 048

REACTIONS (1)
  - Drug ineffective [Unknown]
